FAERS Safety Report 6979097-0 (Version None)
Quarter: 2010Q3

REPORT INFORMATION
  Report Type: 
  Country: None (occurrence: None)
  Receive Date: 20100913
  Receipt Date: 20100831
  Transmission Date: 20110219
  Serious: Yes (Hospitalization)
  Sender: FDA-Public Use
  Company Number: PHFR2010GB02066

PATIENT
  Sex: Male

DRUGS (16)
  1. CLOZARIL [Suspect]
     Indication: SCHIZOPHRENIA
     Dosage: 250 MG
     Route: 048
     Dates: start: 20100505, end: 20100806
  2. DULOXETINE [Concomitant]
     Dosage: 60 MG, QD, MORNING
     Route: 048
  3. GLICLAZIDE [Concomitant]
     Dosage: 80 MG, BID
     Route: 048
  4. LISINOPRIL [Concomitant]
     Dosage: 5 MG, QD
     Route: 048
  5. METFORMIN [Concomitant]
     Dosage: 500 MG, 2 X BD
     Route: 048
  6. OMEPRAZOLE [Concomitant]
     Dosage: 20 MG, QD, MORNING
     Route: 048
  7. ORLISTAT [Concomitant]
     Dosage: 120 MG, TID
     Route: 048
  8. PREGABALIN [Concomitant]
     Dosage: 150 MG, BID
     Route: 048
  9. LITHIUM CARBONATE [Concomitant]
     Dosage: 400 MG MODIFIED RELEASE, 2 AT NIGHT
     Route: 048
  10. LITHIUM CARBONATE [Concomitant]
     Dosage: 200 MG QD AT NIGHT
     Route: 048
  11. SIMVASTATIN [Concomitant]
     Dosage: 40 MG, QD
     Route: 048
  12. LORAZEPAM [Concomitant]
     Indication: ABNORMAL BEHAVIOUR
     Dosage: 1 MG, PRN
     Route: 048
  13. ACETAMINOPHEN [Concomitant]
     Dosage: 500 MG, PRN
     Route: 048
  14. ZOPICLONE [Concomitant]
     Indication: INSOMNIA
     Dosage: 7.5 MG, PRN, AT NIGHT
     Route: 048
  15. FUROSEMIDE [Concomitant]
     Dosage: 40 MG - 2 IN THE MORNING, 1 AT LUNCHTIME
     Route: 048
  16. RAMIPRIL [Concomitant]
     Dosage: 5 MG, QD, AT NIGHT

REACTIONS (9)
  - ASCITES [None]
  - CARDIAC FAILURE CONGESTIVE [None]
  - CREPITATIONS [None]
  - DILATATION VENTRICULAR [None]
  - DYSPNOEA [None]
  - LYMPHOCYTE COUNT INCREASED [None]
  - MICROCYTIC ANAEMIA [None]
  - PLEURAL EFFUSION [None]
  - POIKILOCYTOSIS [None]
